FAERS Safety Report 7746023-6 (Version None)
Quarter: 2011Q3

REPORT INFORMATION
  Report Type: 
  Country: None (occurrence: None)
  Receive Date: 20110913
  Receipt Date: 20110728
  Transmission Date: 20111222
  Serious: No
  Sender: FDA-Public Use
  Company Number: GB-ELI_LILLY_AND_COMPANY-GB201107008045

PATIENT
  Age: 47 Year
  Sex: Male

DRUGS (2)
  1. LEVOTHYROXINE SODIUM [Concomitant]
     Dosage: 75 UG, UNK
  2. DULOXETINE HYDROCHLORIDE [Suspect]
     Dosage: 60 MG, QD

REACTIONS (1)
  - LIVER FUNCTION TEST ABNORMAL [None]
